FAERS Safety Report 15966677 (Version 1)
Quarter: 2019Q1

REPORT INFORMATION
  Report Type: Report from Study
  Country: None (occurrence: CA)
  Receive Date: 20190215
  Receipt Date: 20190215
  Transmission Date: 20190418
  Serious: Yes (Other)
  Sender: FDA-Public Use
  Company Number: CA-ABBVIE-19S-028-2663795-00

PATIENT
  Sex: Male

DRUGS (1)
  1. LUPRON [Suspect]
     Active Substance: LEUPROLIDE ACETATE
     Indication: PROSTATE CANCER
     Route: 030
     Dates: start: 20061220

REACTIONS (8)
  - Oesophageal food impaction [Unknown]
  - Hiatus hernia [Unknown]
  - Decreased appetite [Unknown]
  - Constipation [Unknown]
  - Prostate cancer metastatic [Unknown]
  - Nausea [Unknown]
  - Prostatic specific antigen increased [Unknown]
  - Weight decreased [Unknown]

NARRATIVE: CASE EVENT DATE: 2018
